FAERS Safety Report 10364779 (Version 2)
Quarter: 2014Q3

REPORT INFORMATION
  Report Type: Report from Study
  Country: BR (occurrence: BR)
  Receive Date: 20140806
  Receipt Date: 20140812
  Transmission Date: 20150326
  Serious: Yes (Other)
  Sender: FDA-Public Use
  Company Number: BR-SA-2014SA102405

PATIENT
  Sex: Male
  Weight: 81 kg

DRUGS (12)
  1. SOLOSTAR [Suspect]
     Active Substance: DEVICE
     Dates: start: 20140728, end: 20140728
  2. LANTUS SOLOSTAR [Suspect]
     Active Substance: INSULIN GLARGINE
     Indication: TYPE 2 DIABETES MELLITUS
     Route: 065
     Dates: start: 201401
  3. AAS [Concomitant]
     Active Substance: ASPIRIN
     Indication: PROPHYLAXIS
     Dosage: FROM: 10 YEARS AGO
     Route: 048
  4. SOLOSTAR [Suspect]
     Active Substance: DEVICE
     Indication: TYPE 2 DIABETES MELLITUS
     Dates: start: 201401
  5. SELOZOK [Concomitant]
     Active Substance: METOPROLOL SUCCINATE
     Indication: HYPERTENSION
     Route: 048
  6. CYMBALTA [Concomitant]
     Active Substance: DULOXETINE HYDROCHLORIDE
     Indication: ANTIDEPRESSANT THERAPY
     Dosage: FROM: 1 AND HALF YEAR AGO
     Route: 048
  7. APIDRA SOLOSTAR [Suspect]
     Active Substance: INSULIN GLULISINE
     Indication: TYPE 2 DIABETES MELLITUS
     Dosage: DOSE:50 UNIT(S)
     Route: 065
     Dates: start: 20140728, end: 20140728
  8. SOLOSTAR [Suspect]
     Active Substance: DEVICE
     Dates: start: 201406
  9. APIDRA SOLOSTAR [Suspect]
     Active Substance: INSULIN GLULISINE
     Indication: TYPE 2 DIABETES MELLITUS
     Dosage: DOSE: 6 IU PER MEAL
     Route: 065
     Dates: start: 201406
  10. SIMVASTATIN. [Concomitant]
     Active Substance: SIMVASTATIN
     Indication: BLOOD CHOLESTEROL
     Dosage: FROM:3 YEARS AGO
     Route: 048
  11. QUETIAPINE [Concomitant]
     Active Substance: QUETIAPINE
     Indication: DEPRESSION
     Dosage: FROM: 1 AND HALF YEAR AGO
     Route: 048
  12. CLOPIDOGREL [Concomitant]
     Active Substance: CLOPIDOGREL BISULFATE
     Indication: PROPHYLAXIS
     Dosage: FROM: 1 YEAR AGO
     Route: 048

REACTIONS (5)
  - Hyperglycaemia [Recovering/Resolving]
  - Wrong drug administered [Unknown]
  - Hyperhidrosis [Recovering/Resolving]
  - Feeling hot [Recovering/Resolving]
  - Extra dose administered [Unknown]

NARRATIVE: CASE EVENT DATE: 20140728
